FAERS Safety Report 10129276 (Version 1)
Quarter: 2014Q2

REPORT INFORMATION
  Report Type: Spontaneous
  Country: US (occurrence: US)
  Receive Date: 20140428
  Receipt Date: 20140428
  Transmission Date: 20141212
  Serious: No
  Sender: FDA-Public Use
  Company Number: US-ABBVIE-14P-163-1204652-00

PATIENT
  Age: 67 Year
  Sex: Male
  Weight: 97.61 kg

DRUGS (16)
  1. ANDROGEL [Suspect]
     Indication: PRODUCT USED FOR UNKNOWN INDICATION
     Dosage: 2 PUMPS DAILY
     Route: 061
     Dates: start: 201312
  2. UNSPECIFIED INGREDIENT [Suspect]
     Indication: PRODUCT USED FOR UNKNOWN INDICATION
     Dates: start: 201312
  3. LOTENSIN [Concomitant]
     Indication: BLOOD CHOLESTEROL
  4. METOPROLOL [Concomitant]
     Indication: HEART RATE INCREASED
  5. ALLOPURINOL [Concomitant]
     Indication: GOUT
  6. BENAZEPRIL [Concomitant]
     Indication: HYPERTENSION
  7. EFFEXOR [Concomitant]
     Indication: DEPRESSION
  8. DEPAKOTE [Concomitant]
     Indication: BIPOLAR DISORDER
  9. DEPAKOTE [Concomitant]
     Indication: AFFECTIVE DISORDER
  10. VIAGRA [Concomitant]
     Indication: PRODUCT USED FOR UNKNOWN INDICATION
  11. ULTRAM [Concomitant]
     Indication: PAIN
  12. TRAMADOL [Concomitant]
     Indication: PAIN
  13. HYDROXYZINE [Concomitant]
     Indication: ANXIETY
  14. IBUPROFEN [Concomitant]
     Indication: ARTHRITIS
  15. ALEVE [Concomitant]
     Indication: ARTHRITIS
  16. SWISS NAVY LUBRICANT [Concomitant]
     Indication: INADEQUATE LUBRICATION
     Route: 061

REACTIONS (5)
  - Rash erythematous [Not Recovered/Not Resolved]
  - Rash vesicular [Recovered/Resolved]
  - Rash pruritic [Recovered/Resolved]
  - Drug administered at inappropriate site [Not Recovered/Not Resolved]
  - Drug prescribing error [Unknown]
